FAERS Safety Report 9477236 (Version 1)
Quarter: 2013Q3

REPORT INFORMATION
  Report Type: Spontaneous
  Country: DE (occurrence: DE)
  Receive Date: 20130826
  Receipt Date: 20130826
  Transmission Date: 20140515
  Serious: Yes (Death, Life-Threatening, Hospitalization)
  Sender: FDA-Public Use
  Company Number: DE-JNJFOC-20130809469

PATIENT
  Age: 31 Year
  Sex: Female
  Weight: 97.5 kg

DRUGS (5)
  1. HALDOL DECANOATE [Suspect]
     Indication: PRODUCT USED FOR UNKNOWN INDICATION
     Route: 030
  2. TRUXAL [Suspect]
     Indication: PRODUCT USED FOR UNKNOWN INDICATION
     Route: 048
  3. ABILIFY [Suspect]
     Indication: PRODUCT USED FOR UNKNOWN INDICATION
     Route: 048
  4. TIMONIL [Concomitant]
     Route: 048
  5. QUILONUM RETARD [Concomitant]
     Route: 048
     Dates: start: 20050815

REACTIONS (4)
  - Myocardial infarction [Fatal]
  - Hospitalisation [Unknown]
  - Thrombocytosis [Unknown]
  - Gamma-glutamyltransferase increased [Unknown]
